FAERS Safety Report 6930435-4 (Version None)
Quarter: 2010Q3

REPORT INFORMATION
  Report Type: 
  Country: None (occurrence: None)
  Receive Date: 20100818
  Receipt Date: 20100804
  Transmission Date: 20110219
  Serious: Yes (Hospitalization)
  Sender: FDA-Public Use
  Company Number: ES-ELI_LILLY_AND_COMPANY-ES201008001430

PATIENT
  Sex: Female
  Weight: 90 kg

DRUGS (7)
  1. FORTEO [Suspect]
     Indication: OSTEOPOROSIS
     Dosage: 20 UG, DAILY (1/D)
     Route: 058
     Dates: start: 20100613
  2. XERISTAR [Concomitant]
     Indication: MENTAL DISORDER
     Dosage: UNK, UNK
     Route: 048
  3. LEXATIN [Concomitant]
     Indication: MENTAL DISORDER
     Dosage: UNK, UNK
     Route: 048
  4. IDALPREM [Concomitant]
     Indication: INSOMNIA
     Dosage: UNK, UNK
     Route: 048
  5. LEVOTHROID [Concomitant]
     Indication: HYPOTHYROIDISM
     Dosage: UNK, UNK
     Route: 048
  6. OMEPRAZOLE [Concomitant]
     Indication: PROPHYLAXIS
     Dosage: UNK, UNK
     Route: 048
  7. PARACETAMOL [Concomitant]
     Indication: PAIN
     Dosage: 1 G, EVERY 6 HRS
     Route: 048

REACTIONS (7)
  - CHEST INJURY [None]
  - CONTUSION [None]
  - FRACTURE [None]
  - HAEMOTHORAX [None]
  - MUSCLE STRAIN [None]
  - RIB FRACTURE [None]
  - ROAD TRAFFIC ACCIDENT [None]
